FAERS Safety Report 9850321 (Version 1)
Quarter: 2014Q1

REPORT INFORMATION
  Report Type: Spontaneous
  Country: US (occurrence: US)
  Receive Date: 20140128
  Receipt Date: 20140128
  Transmission Date: 20141002
  Serious: Yes (Other)
  Sender: FDA-Public Use
  Company Number: US-BAYER-2014-011134

PATIENT
  Sex: Female

DRUGS (3)
  1. BAYER GENUINE ASPIRIN ORIGINAL STRENGTH [Suspect]
  2. WARFARIN [Suspect]
  3. CELEBREX [Suspect]

REACTIONS (2)
  - Apparent death [None]
  - Gastric perforation [Unknown]
